FAERS Safety Report 11604168 (Version 2)
Quarter: 2015Q4

REPORT INFORMATION
  Report Type: Spontaneous
  Country: NL (occurrence: NL)
  Receive Date: 20151007
  Receipt Date: 20151019
  Transmission Date: 20160304
  Serious: Yes (Death)
  Sender: FDA-Public Use
  Company Number: NL-TOLMAR, INC.-2015NL008904

PATIENT
  Sex: Male

DRUGS (1)
  1. ELIGARD [Suspect]
     Active Substance: LEUPROLIDE ACETATE
     Indication: PROSTATE CANCER METASTATIC
     Dosage: 45 MG, ONCE EVERY SIX MONTHS, CYCLIC
     Route: 058
     Dates: start: 20150416

REACTIONS (1)
  - Prostate cancer [Fatal]
